FAERS Safety Report 6803335-8 (Version None)
Quarter: 2010Q2

REPORT INFORMATION
  Report Type: 
  Country: None (occurrence: None)
  Receive Date: 20100628
  Receipt Date: 20100618
  Transmission Date: 20101027
  Serious: Yes (Hospitalization)
  Sender: FDA-Public Use
  Company Number: DE-ROCHE-694810

PATIENT
  Sex: Female
  Weight: 100 kg

DRUGS (17)
  1. BEVACIZUMAB [Suspect]
     Indication: BREAST CANCER
     Dosage: FORM: INFUSION.
     Route: 042
     Dates: start: 20100224
  2. EPIRUBICIN [Suspect]
     Indication: BREAST CANCER
     Dosage: FORM: INFUSION, DATE OF LAST DOSE PRIOR TO SAE: 28 APRIL 2010
     Route: 042
     Dates: start: 20100224
  3. CYCLOPHOSPHAMIDE [Suspect]
     Indication: BREAST CANCER
     Dosage: FORM: INFUSION, DATE OF LAST DOSE PRIOR TO SAE: 28 APRIL 2010
     Route: 042
     Dates: start: 20100224
  4. DOCETAXEL [Suspect]
     Indication: BREAST CANCER
     Dosage: FORM: INFUSION, DATE OF LAST DOSE PRIOR TO SAE: 19 MAY 2010, DOSE: REDUCED.
     Route: 042
  5. DOCETAXEL [Suspect]
     Dosage: DOSE REDUCED.
     Route: 042
     Dates: start: 20100609
  6. DEXAMETHASONE TAB [Concomitant]
     Route: 042
     Dates: start: 20100224, end: 20100224
  7. DEXAMETHASONE TAB [Concomitant]
     Route: 042
     Dates: start: 20100519, end: 20100519
  8. DEXAMETHASONE TAB [Concomitant]
     Route: 042
     Dates: start: 20100520, end: 20100521
  9. DEXAMETHASONE TAB [Concomitant]
     Route: 042
     Dates: start: 20100522, end: 20100522
  10. DEXAMETHASONE TAB [Concomitant]
     Route: 042
     Dates: start: 20100609, end: 20100609
  11. GRANISETRON [Concomitant]
     Route: 042
     Dates: start: 20100224, end: 20100224
  12. GRANISETRON [Concomitant]
     Route: 042
     Dates: start: 20100519, end: 20100519
  13. GRANISETRON [Concomitant]
     Route: 042
     Dates: start: 20100609, end: 20100609
  14. UROMITEXAN [Concomitant]
     Dates: start: 20100224, end: 20100224
  15. ACETAMINOPHEN [Concomitant]
     Dates: start: 20100224, end: 20100224
  16. EMEND [Concomitant]
     Route: 048
     Dates: start: 20100519, end: 20100519
  17. EMEND [Concomitant]
     Route: 048
     Dates: start: 20100520, end: 20100521

REACTIONS (3)
  - MUCOSAL INFLAMMATION [None]
  - NAUSEA [None]
  - SUBCUTANEOUS ABSCESS [None]
